FAERS Safety Report 4301761-2 (Version None)
Quarter: 2004Q1

REPORT INFORMATION
  Report Type: 
  Country: None (occurrence: None)
  Receive Date: 20040126
  Receipt Date: 20031006
  Transmission Date: 20041129
  Serious: No
  Sender: FDA-Public Use
  Company Number: USA031049078

PATIENT
  Age: 53 Year
  Sex: Male
  Weight: 70 kg

DRUGS (1)
  1. STRATTERA [Suspect]
     Indication: ATTENTION DEFICIT/HYPERACTIVITY DISORDER
     Dosage: 40 MG/ 1 IN THE MORNING
     Dates: start: 20030920

REACTIONS (5)
  - DRY MOUTH [None]
  - DYSURIA [None]
  - FEELING ABNORMAL [None]
  - INSOMNIA [None]
  - NAUSEA [None]
